FAERS Safety Report 5899244-1 (Version None)
Quarter: 2008Q3

REPORT INFORMATION
  Report Type: 
  Country: None (occurrence: None)
  Receive Date: 20080925
  Receipt Date: 20080918
  Transmission Date: 20090109
  Serious: Yes (Hospitalization, Other)
  Sender: FDA-Public Use
  Company Number: PR-GENENTECH-268227

PATIENT
  Sex: Male
  Weight: 64.5 kg

DRUGS (9)
  1. MABTHERA [Suspect]
     Indication: LYMPHOMA
     Dosage: 375 MG/M2, Q2W
     Route: 042
     Dates: start: 20080428, end: 20080527
  2. NEULASTA [Suspect]
     Indication: CHEMOTHERAPY
     Dosage: 6 MG/M2, Q2W
     Route: 058
     Dates: start: 20080430, end: 20080529
  3. OXALIPLATIN [Suspect]
     Indication: LYMPHOMA
     Dosage: 100 MG/M2, Q2W
     Route: 042
     Dates: start: 20080429, end: 20080528
  4. GEMCITABINE [Suspect]
     Indication: LYMPHOMA
     Dosage: 1000 MG/M2, Q2W
     Route: 042
     Dates: start: 20080429, end: 20080528
  5. MESNA [Concomitant]
     Indication: LYMPHOMA
  6. IFOSFAMIDE [Concomitant]
     Indication: LYMPHOMA
  7. NOVANTRONE [Concomitant]
     Indication: LYMPHOMA
  8. ETOPOSIDE [Concomitant]
     Indication: LYMPHOMA
  9. ANTIANXIETY AGENT NOS [Concomitant]
     Indication: ANXIETY

REACTIONS (2)
  - DISEASE PROGRESSION [None]
  - FEBRILE NEUTROPENIA [None]
